FAERS Safety Report 24323101 (Version 1)
Quarter: 2024Q3

REPORT INFORMATION
  Report Type: Spontaneous
  Country: US (occurrence: None)
  Receive Date: 20240913
  Receipt Date: 20240913
  Transmission Date: 20241017
  Serious: Yes (unspecified)
  Sender: Public
  Company Number: None

PATIENT
  Age: 58 Year
  Sex: Male

DRUGS (1)
  1. NIVESTYM [Suspect]
     Active Substance: FILGRASTIM-AAFI
     Indication: Stem cell therapy
     Dosage: OTHER STRENGTH : 480/9.8 UG/ML;?FREQUENCY : DAILY;?

REACTIONS (3)
  - Product dispensing error [None]
  - Product dispensing error [None]
  - Inappropriate schedule of product administration [None]
